FAERS Safety Report 6079966-2 (Version None)
Quarter: 2009Q1

REPORT INFORMATION
  Report Type: 
  Country: None (occurrence: None)
  Receive Date: 20090217
  Receipt Date: 20081112
  Transmission Date: 20090719
  Serious: No
  Sender: FDA-Public Use
  Company Number: A0753283A

PATIENT
  Age: 66 Year
  Sex: Female

DRUGS (5)
  1. COREG CR [Suspect]
     Indication: HYPERTENSION
     Dosage: 20MG PER DAY
     Route: 048
     Dates: start: 20081018, end: 20081107
  2. ZOCOR [Concomitant]
  3. PRILOSEC [Concomitant]
  4. DIOVAN [Concomitant]
  5. TUMS [Concomitant]

REACTIONS (1)
  - DYSPEPSIA [None]
